FAERS Safety Report 9788744 (Version 1)
Quarter: 2013Q4

REPORT INFORMATION
  Report Type: Spontaneous
  Country: RU (occurrence: RU)
  Receive Date: 20131230
  Receipt Date: 20131230
  Transmission Date: 20140711
  Serious: Yes (Hospitalization)
  Sender: FDA-Public Use
  Company Number: PHHY2013RU151965

PATIENT
  Age: 64 Year
  Sex: Male

DRUGS (1)
  1. GLIVEC [Suspect]
     Dosage: UNK
     Route: 048

REACTIONS (3)
  - Pleurisy [Recovering/Resolving]
  - Generalised oedema [Recovering/Resolving]
  - Pericarditis [Recovering/Resolving]
